FAERS Safety Report 14237680 (Version 3)
Quarter: 2018Q1

REPORT INFORMATION
  Report Type: Spontaneous
  Country: FR (occurrence: FR)
  Receive Date: 20171129
  Receipt Date: 20180213
  Transmission Date: 20180508
  Serious: Yes (Hospitalization)
  Sender: FDA-Public Use
  Company Number: FR-MERCK KGAA-2036327

PATIENT
  Age: 65 Year
  Sex: Female

DRUGS (2)
  1. LEVOTHYROX 100 NF [Suspect]
     Active Substance: LEVOTHYROXINE SODIUM
     Dates: start: 2017
  2. NOVOTHYROX [Suspect]
     Active Substance: LEVOTHYROXINE SODIUM
     Indication: HYPOTHYROIDISM
     Dates: start: 201704

REACTIONS (14)
  - Headache [None]
  - Feeling abnormal [None]
  - Blood thyroid stimulating hormone abnormal [None]
  - Insomnia [Not Recovered/Not Resolved]
  - Nausea [None]
  - Syncope [None]
  - Dizziness [Recovering/Resolving]
  - Alopecia [Recovering/Resolving]
  - Fatigue [Not Recovered/Not Resolved]
  - Malaise [None]
  - Tachycardia [None]
  - Visual impairment [None]
  - Thyroid function test abnormal [None]
  - Muscle spasms [Not Recovered/Not Resolved]

NARRATIVE: CASE EVENT DATE: 2017
